FAERS Safety Report 7888754-3 (Version None)
Quarter: 2011Q4

REPORT INFORMATION
  Report Type: 
  Country: None (occurrence: None)
  Receive Date: 20111103
  Receipt Date: 20111020
  Transmission Date: 20120403
  Serious: Yes (Other)
  Sender: FDA-Public Use
  Company Number: JP-ELI_LILLY_AND_COMPANY-JP201106001184

PATIENT
  Age: 65 Year
  Sex: Female

DRUGS (1)
  1. FORTEO [Suspect]
     Dosage: UNK
     Route: 058
     Dates: start: 20110401

REACTIONS (5)
  - BACK PAIN [None]
  - NASOPHARYNGITIS [None]
  - DIZZINESS [None]
  - LUMBAR VERTEBRAL FRACTURE [None]
  - LABILE BLOOD PRESSURE [None]
